FAERS Safety Report 6071526-2 (Version None)
Quarter: 2009Q1

REPORT INFORMATION
  Report Type: 
  Country: None (occurrence: None)
  Receive Date: 20090209
  Receipt Date: 20090209
  Transmission Date: 20090719
  Serious: Yes (Hospitalization)
  Sender: FDA-Public Use
  Company Number: None

PATIENT
  Sex: Male
  Weight: 91.2 kg

DRUGS (4)
  1. VINCRISTINE SULFATE [Suspect]
     Dosage: 6 MG
  2. METHOTREXATE [Suspect]
     Dosage: 1176 MG
  3. PEG-L ASPARAGINASE (K-H) [Suspect]
     Dosage: 10800 IU
  4. HYDROMORPHONE HCL [Concomitant]

REACTIONS (2)
  - NAUSEA [None]
  - NECK PAIN [None]
